FAERS Safety Report 24857636 (Version 1)
Quarter: 2025Q1

REPORT INFORMATION
  Report Type: Spontaneous
  Country: US (occurrence: US)
  Receive Date: 20250117
  Receipt Date: 20250117
  Transmission Date: 20250409
  Serious: Yes (Death, Hospitalization, Other)
  Sender: DR REDDYS
  Company Number: US-DRL-USA-USA/2025/01/000778

PATIENT
  Age: 49 Year
  Sex: Female

DRUGS (3)
  1. DOXYCYCLINE [Suspect]
     Active Substance: DOXYCYCLINE
     Indication: Vibrio vulnificus infection
  2. CLINDAMYCIN [Suspect]
     Active Substance: CLINDAMYCIN
     Indication: Vibrio vulnificus infection
  3. CEFEPIME [Suspect]
     Active Substance: CEFEPIME HYDROCHLORIDE
     Indication: Vibrio vulnificus infection

REACTIONS (4)
  - Sepsis [Fatal]
  - Bullous haemorrhagic dermatosis [Fatal]
  - Shock [Fatal]
  - Drug ineffective for unapproved indication [Fatal]
